FAERS Safety Report 5993813-6 (Version None)
Quarter: 2008Q4

REPORT INFORMATION
  Report Type: 
  Country: None (occurrence: None)
  Receive Date: 20081212
  Receipt Date: 20081024
  Transmission Date: 20090506
  Serious: No
  Sender: FDA-Public Use
  Company Number: US-ABBOTT-05P-163-0287099-00

PATIENT
  Sex: Female
  Weight: 70.37 kg

DRUGS (7)
  1. HUMIRA [Suspect]
     Indication: RHEUMATOID ARTHRITIS
     Route: 058
     Dates: start: 20040101, end: 20050118
  2. VITAMINS [Concomitant]
     Indication: SUPPLEMENTATION THERAPY
  3. ARTHROTEC [Concomitant]
     Indication: RHEUMATOID ARTHRITIS
  4. DIOVAN [Concomitant]
     Indication: BLOOD PRESSURE INCREASED
  5. IRON [Concomitant]
     Indication: VITAMIN SUPPLEMENTATION
  6. DARVOCET [Concomitant]
     Indication: PAIN
  7. PREDNISONE TAB [Concomitant]
     Indication: RHEUMATOID ARTHRITIS

REACTIONS (2)
  - LOWER RESPIRATORY TRACT INFECTION [None]
  - UPPER RESPIRATORY TRACT INFECTION [None]
